FAERS Safety Report 9001382 (Version 5)
Quarter: 2013Q1

REPORT INFORMATION
  Report Type: Spontaneous
  Country: US (occurrence: US)
  Receive Date: 20130107
  Receipt Date: 20130308
  Transmission Date: 20140127
  Serious: No
  Sender: FDA-Public Use
  Company Number: US-PFIZER INC-2013002522

PATIENT
  Sex: 0

DRUGS (21)
  1. TOVIAZ [Suspect]
     Indication: HYPERTONIC BLADDER
     Dosage: 4 MG, PM 1
  2. TOVIAZ [Suspect]
     Dosage: 8 MG, UNK
  3. PREDNISONE [Concomitant]
     Dosage: 5MG IN AM, 2.5MG IN PM
  4. METHADONE [Concomitant]
     Indication: PAIN
     Dosage: 20, AS NEEDED UP TO 8 PILLS/DAY, AM 1, PM 1, BED 1
  5. CLONAZEPAM [Concomitant]
     Indication: SLEEP DISORDER
     Dosage: 2, BED 1
  6. VITAMIN B12 [Concomitant]
     Dosage: 1000UG, MONTHLY, 1ST OF MO.
  7. MIRALAX [Concomitant]
     Dosage: TAKEN DAILY, TWICE AS NEEDED
  8. TESTOST CYP [Concomitant]
     Dosage: 150MG/2WKS-1ST + 15TH OF MO.
  9. IRON [Concomitant]
     Dosage: 325, PM 1
  10. CALCIUM +D [Concomitant]
     Dosage: 600, AM 1, PM 1
  11. AVASTIN [Concomitant]
     Indication: AGE-RELATED MACULAR DEGENERATION
     Dosage: EVERY 5-6 WKS
  12. FISH OIL [Concomitant]
     Dosage: 1000, AM 1
  13. FUROSEMIDE [Concomitant]
     Dosage: 40, AM 1
  14. DIGOXIN [Concomitant]
     Dosage: 0.125, LF PULSE UNDER 60, DON^T TAKE, AM 1
  15. CRESTOR [Concomitant]
     Dosage: 5, EVERY OTHER DAY, AM 1
  16. AMIODARONE [Concomitant]
     Dosage: 100, AM 1
  17. BABY ASPIRIN [Concomitant]
     Dosage: 81, 162 MG TOTAL, AM 1
  18. LOPRESSOR [Concomitant]
     Dosage: 12.5, AM 1, PM 1
  19. WARFARIN SODIUM [Concomitant]
     Dosage: VARIES, 5.0 MG M/W/F- OTHER DAYS 2.5 MG, AM 1
  20. ALENDRONATE SODIUM [Concomitant]
     Dosage: 70, PILL WEEKLY 1 HR. BEFORE ALL MEDS/FOOD, AM 1, PM 1
  21. METAMUCIL [Concomitant]
     Dosage: 2 PILLS DAILY, LUNCH 1

REACTIONS (2)
  - Drug ineffective [Unknown]
  - Dry mouth [Unknown]
